FAERS Safety Report 12385170 (Version 1)
Quarter: 2016Q2

REPORT INFORMATION
  Report Type: Spontaneous
  Country: US (occurrence: US)
  Receive Date: 20160519
  Receipt Date: 20160519
  Transmission Date: 20160815
  Serious: Yes (Other)
  Sender: FDA-Public Use
  Company Number: US-MDT-ADR-2016-00909

PATIENT
  Age: 52 Year
  Sex: Male
  Weight: 116 kg

DRUGS (14)
  1. KLONOPIN [Suspect]
     Active Substance: CLONAZEPAM
     Route: 065
  2. COMPOUNDED BACLOFEN [Suspect]
     Active Substance: BACLOFEN
     Route: 037
  3. PEPCID [Suspect]
     Active Substance: FAMOTIDINE
     Route: 065
  4. NEURONTIN [Suspect]
     Active Substance: GABAPENTIN
     Route: 065
  5. FENTANYL. [Suspect]
     Active Substance: FENTANYL
     Route: 037
  6. COMPOUNDED BACLOFEN [Suspect]
     Active Substance: BACLOFEN
     Route: 037
  7. DESYREL [Suspect]
     Active Substance: TRAZODONE HYDROCHLORIDE
     Route: 065
  8. PRIALT [Suspect]
     Active Substance: ZICONOTIDE ACETATE
     Dosage: 0.5 MCG/DAY
     Route: 037
  9. ATROVENT [Suspect]
     Active Substance: IPRATROPIUM BROMIDE
     Route: 065
  10. SYNTHROID [Suspect]
     Active Substance: LEVOTHYROXINE SODIUM
     Route: 065
  11. FLOMAX [Suspect]
     Active Substance: TAMSULOSIN HYDROCHLORIDE
     Route: 065
  12. FENTANYL. [Suspect]
     Active Substance: FENTANYL
     Route: 037
  13. PROSCAR [Suspect]
     Active Substance: FINASTERIDE
     Route: 065
  14. FLONASE [Suspect]
     Active Substance: FLUTICASONE PROPIONATE
     Route: 065

REACTIONS (1)
  - Infusion site mass [Unknown]

NARRATIVE: CASE EVENT DATE: 20160212
